FAERS Safety Report 12854370 (Version 1)
Quarter: 2016Q4

REPORT INFORMATION
  Report Type: Report from Study
  Country: FR (occurrence: FR)
  Receive Date: 20161017
  Receipt Date: 20161017
  Transmission Date: 20170207
  Serious: Yes (Death, Hospitalization, Other)
  Sender: FDA-Public Use
  Company Number: FR-ROCHE-1064941

PATIENT
  Age: 53 Year
  Sex: Male
  Weight: 82 kg

DRUGS (2)
  1. VISMODEGIB [Suspect]
     Active Substance: VISMODEGIB
     Route: 048
  2. VISMODEGIB [Suspect]
     Active Substance: VISMODEGIB
     Indication: CHONDROSARCOMA
     Dosage: LAST DOSE: 05/MAR/2012, CYCLE 1 DAY 20
     Route: 048
     Dates: start: 20120215

REACTIONS (4)
  - Acute respiratory distress syndrome [Recovered/Resolved]
  - Aspartate aminotransferase increased [Recovered/Resolved]
  - Embolism [Fatal]
  - Alanine aminotransferase increased [Recovered/Resolved]

NARRATIVE: CASE EVENT DATE: 20120222
